FAERS Safety Report 8724443 (Version 2)
Quarter: 2012Q4

REPORT INFORMATION
  Report Type: 
  Country: US (occurrence: US)
  Receive Date: 20120815
  Receipt Date: 20120928
  Transmission Date: 20130627
  Serious: No
  Sender: FDA-Public Use
  Company Number: US-009507513-2012SP034366

PATIENT
  Age: 1 Year

DRUGS (1)
  1. COPPERTONE KIDS SPF 70 PLUS [Suspect]
     Indication: PRODUCT USED FOR UNKNOWN INDICATION
     Dosage: UNK UNK, Unknown
     Route: 061

REACTIONS (2)
  - Sunburn [Unknown]
  - Expired drug administered [Unknown]
